FAERS Safety Report 5121793-4 (Version None)
Quarter: 2006Q4

REPORT INFORMATION
  Report Type: 
  Country: None (occurrence: None)
  Receive Date: 20061003
  Receipt Date: 20060921
  Transmission Date: 20070319
  Serious: Yes (Hospitalization, Disabling)
  Sender: FDA-Public Use
  Company Number: 2006-01545

PATIENT
  Age: 38 Year

DRUGS (3)
  1. VELCADE [Suspect]
     Dosage: INTRAVENOUS
     Route: 042
  2. ADRIAMYCIN PFS [Suspect]
     Indication: MULTIPLE MYELOMA
  3. DEXAMETHASONE TAB [Suspect]
     Indication: MULTIPLE MYELOMA

REACTIONS (6)
  - CATHETER RELATED COMPLICATION [None]
  - DEVICE MALFUNCTION [None]
  - HEPARIN-INDUCED THROMBOCYTOPENIA [None]
  - HYPERCOAGULATION [None]
  - MULTIFOCAL MOTOR NEUROPATHY [None]
  - POLYNEUROPATHY [None]
